FAERS Safety Report 5320889-1 (Version None)
Quarter: 2007Q2

REPORT INFORMATION
  Report Type: 
  Country: None (occurrence: None)
  Receive Date: 20070504
  Receipt Date: 20070423
  Transmission Date: 20071010
  Serious: Yes (Death, Life-Threatening)
  Sender: FDA-Public Use
  Company Number: GXKR2007AU03718

PATIENT
  Age: 45 Year
  Sex: Female

DRUGS (1)
  1. PARACETAMOL (NGX)(PARACETAMOL) UNKNOWN [Suspect]
     Indication: ABDOMINAL PAIN
     Dosage: 1 G, QID

REACTIONS (18)
  - ABNORMAL BEHAVIOUR [None]
  - ACCIDENTAL POISONING [None]
  - ACUTE HEPATIC FAILURE [None]
  - BLOOD LACTIC ACID INCREASED [None]
  - BLOOD POTASSIUM DECREASED [None]
  - BLOOD SODIUM INCREASED [None]
  - CONFUSIONAL STATE [None]
  - DRUG TOXICITY [None]
  - HAEMATURIA [None]
  - HEPATIC ATROPHY [None]
  - HEPATIC NECROSIS [None]
  - HEPATIC STEATOSIS [None]
  - INTERNATIONAL NORMALISED RATIO INCREASED [None]
  - LIVER FUNCTION TEST ABNORMAL [None]
  - METABOLIC ACIDOSIS [None]
  - MULTI-ORGAN FAILURE [None]
  - RENAL FAILURE [None]
  - SOMNOLENCE [None]
